FAERS Safety Report 4616620-5 (Version None)
Quarter: 2005Q1

REPORT INFORMATION
  Report Type: 
  Country: None (occurrence: None)
  Receive Date: 20050321
  Receipt Date: 20040621
  Transmission Date: 20050727
  Serious: No
  Sender: FDA-Public Use
  Company Number: 8281

PATIENT
  Age: 3 Year
  Sex: Male

DRUGS (5)
  1. ETOPOSIDE [Suspect]
     Indication: RETINOBLASTOMA
     Dosage: 50 MG/M2/1200 MG/M2 TOTAL, PO/IV
  2. CARBOPLATIN [Suspect]
     Indication: RETINOBLASTOMA
     Dosage: 4000 MG/M2 TOTAL
  3. VINCRISTINE [Suspect]
     Indication: RETINOBLASTOMA
     Dosage: 6 MG/M2 TOTAL
  4. IDARUBICIN HCL [Suspect]
     Indication: RETINOBLASTOMA
     Dosage: 100 MG/M2 TOTAL
  5. CYCLOPHOSPHAMIDE [Suspect]
     Indication: RETINOBLASTOMA
     Dosage: 7800 MG/M2 TOTAL

REACTIONS (3)
  - ACUTE MYELOID LEUKAEMIA [None]
  - DISEASE PROGRESSION [None]
  - DRUG INEFFECTIVE [None]
